FAERS Safety Report 17941856 (Version 1)
Quarter: 2020Q2

REPORT INFORMATION
  Report Type: Spontaneous
  Country: US (occurrence: US)
  Receive Date: 20200624
  Receipt Date: 20200624
  Transmission Date: 20200714
  Serious: Yes (Hospitalization)
  Sender: FDA-Public Use
  Company Number: None

PATIENT
  Sex: Female

DRUGS (24)
  1. VITAMIN D [Concomitant]
     Active Substance: VITAMIN D NOS
  2. AZITHROMYCIN ANHYDROUS. [Concomitant]
     Active Substance: AZITHROMYCIN ANHYDROUS
  3. BENZONATATE. [Concomitant]
     Active Substance: BENZONATATE
  4. METOPROL TAR [Concomitant]
  5. LOVASTATIN. [Concomitant]
     Active Substance: LOVASTATIN
  6. PREDNISONE. [Concomitant]
     Active Substance: PREDNISONE
  7. ENBREL [Suspect]
     Active Substance: ETANERCEPT
     Indication: RHEUMATOID ARTHRITIS
     Route: 058
     Dates: start: 20200520
  8. AMOXICILLIN. [Concomitant]
     Active Substance: AMOXICILLIN
  9. FEROSUL [Concomitant]
     Active Substance: FERROUS SULFATE
  10. GABAPENTIN. [Concomitant]
     Active Substance: GABAPENTIN
  11. METOCLOPRAM [Concomitant]
     Active Substance: METOCLOPRAMIDE
  12. CLOPIDOGREE [Concomitant]
  13. METHOTREXATE. [Concomitant]
     Active Substance: METHOTREXATE
  14. HYC [Concomitant]
  15. FOLIC ACID. [Concomitant]
     Active Substance: FOLIC ACID
  16. HYDROXYCHLOR [Concomitant]
     Active Substance: HYDROXYCHLOROQUINE
  17. METFORMIN [Concomitant]
     Active Substance: METFORMIN HYDROCHLORIDE
  18. MOXIFLOXACIN. [Concomitant]
     Active Substance: MOXIFLOXACIN
  19. SUCRALFATE. [Concomitant]
     Active Substance: SUCRALFATE
  20. TOPIRAMATE. [Concomitant]
     Active Substance: TOPIRAMATE
  21. CEFDINIR. [Concomitant]
     Active Substance: CEFDINIR
  22. DOXYCYCL [Concomitant]
  23. LEVOTHYROXIN [Concomitant]
     Active Substance: LEVOTHYROXINE
  24. PANTOPRAZOLE [Concomitant]
     Active Substance: PANTOPRAZOLE

REACTIONS (3)
  - Skin disorder [None]
  - Headache [None]
  - Dizziness [None]
